FAERS Safety Report 4465744-4 (Version None)
Quarter: 2004Q3

REPORT INFORMATION
  Report Type: 
  Country: None (occurrence: None)
  Receive Date: 20040929
  Receipt Date: 20040929
  Transmission Date: 20050211
  Serious: Yes (Hospitalization, Other)
  Sender: FDA-Public Use
  Company Number: None

PATIENT
  Age: 13 Year
  Sex: Male
  Weight: 68.4932 kg

DRUGS (1)
  1. HALDOL [Suspect]
     Indication: ATTENTION DEFICIT/HYPERACTIVITY DISORDER
     Dosage: 10 MG 3 X PER DAY ORAL
     Route: 048
     Dates: start: 20040917, end: 20040920

REACTIONS (4)
  - DROOLING [None]
  - FACIAL SPASM [None]
  - MARKEDLY REDUCED DIETARY INTAKE [None]
  - TREMOR [None]
